FAERS Safety Report 5024586-1 (Version None)
Quarter: 2006Q2

REPORT INFORMATION
  Report Type: 
  Country: None (occurrence: None)
  Receive Date: 20060607
  Receipt Date: 20060529
  Transmission Date: 20061013
  Serious: Yes (Other)
  Sender: FDA-Public Use
  Company Number: 2006062963

PATIENT
  Age: 64 Year
  Sex: Male

DRUGS (8)
  1. AMLODIPINE [Suspect]
     Indication: CORONARY ARTERY DISEASE
     Dosage: 5 MG , ORAL
     Route: 048
     Dates: start: 20060123, end: 20060510
  2. TAHOR (ATORVASTATIN) [Suspect]
     Indication: CORONARY ARTERY DISEASE
     Dosage: 10 MG, ORAL
     Route: 048
     Dates: start: 20060202, end: 20060501
  3. DEBRIDAT (TRIMEBUTINE) [Suspect]
     Indication: COLITIS
     Dosage: 600 MG (200 MG, 3 IN 1 D), ORAL
     Route: 048
     Dates: start: 20040601
  4. MOVICOL (MACROGOL, POTASSIUM CHLORIDE, SODIUM BICARBONATE, SODIUM CHLO [Concomitant]
  5. PLAVIX [Concomitant]
  6. KARDEGIC (ACETYLSALICYLATE LYSINE) [Concomitant]
  7. TRANSILANE (POTASSIUM BICARBONATE, PSYLLIUM HYDROPHILIC MUCILLOID) [Concomitant]
  8. LIBRAX [Concomitant]

REACTIONS (9)
  - ABDOMINAL PAIN [None]
  - ALANINE AMINOTRANSFERASE INCREASED [None]
  - CONSTIPATION [None]
  - CORONARY ARTERY STENOSIS [None]
  - DIVERTICULUM INTESTINAL [None]
  - FLATULENCE [None]
  - HAEMOCHROMATOSIS [None]
  - TRANSAMINASES INCREASED [None]
  - WEIGHT DECREASED [None]
